FAERS Safety Report 12904591 (Version 1)
Quarter: 2016Q4

REPORT INFORMATION
  Report Type: Spontaneous
  Country: IT (occurrence: IT)
  Receive Date: 20161102
  Receipt Date: 20161102
  Transmission Date: 20170207
  Serious: Yes (Death)
  Sender: FDA-Public Use
  Company Number: IT-PFIZER INC-2016020924

PATIENT
  Age: 61 Year
  Sex: Male

DRUGS (1)
  1. PROPOFOL. [Suspect]
     Active Substance: PROPOFOL
     Indication: COMPLETED SUICIDE
     Dosage: UNK
     Route: 041

REACTIONS (2)
  - Drug abuse [Fatal]
  - Toxicity to various agents [Fatal]
